FAERS Safety Report 4712543-1 (Version None)
Quarter: 2005Q2

REPORT INFORMATION
  Report Type: 
  Country: None (occurrence: None)
  Receive Date: 20050629
  Receipt Date: 20050415
  Transmission Date: 20051028
  Serious: No
  Sender: FDA-Public Use
  Company Number: 05P-163-0297552-00

PATIENT
  Age: 60 Year
  Sex: Female
  Weight: 96.6162 kg

DRUGS (13)
  1. HUMIRA [Suspect]
     Indication: RHEUMATOID ARTHRITIS
     Dosage: 40 MG, 1 IN 2 WK, SUBCUTANEOUS
     Route: 058
     Dates: start: 20050405
  2. PREDNISONE [Concomitant]
  3. MELOXICAM [Concomitant]
  4. PHENAGLYCODOL [Concomitant]
  5. SULFASALAZINE [Concomitant]
  6. GLYCERYL TRINITRATE [Concomitant]
  7. ASPIRIN [Concomitant]
  8. FUROSEMIDE [Concomitant]
  9. GLIPIZIDE [Concomitant]
  10. PANTOPRAZOLE [Concomitant]
  11. COUMADIN [Concomitant]
  12. GLUCOPHAGE [Concomitant]
  13. ENALAPRIL MALEATE [Concomitant]

REACTIONS (2)
  - BLOOD GLUCOSE INCREASED [None]
  - SINUS HEADACHE [None]
